FAERS Safety Report 7413866-8 (Version None)
Quarter: 2011Q2

REPORT INFORMATION
  Report Type: 
  Country: None (occurrence: None)
  Receive Date: 20110414
  Receipt Date: 20110405
  Transmission Date: 20111010
  Serious: Yes (Other)
  Sender: FDA-Public Use
  Company Number: AR-AMGEN-ARGSP2011016597

PATIENT
  Sex: Female

DRUGS (4)
  1. ENALAPRIL MALEATE [Suspect]
     Indication: HYPERTENSION
     Dosage: 10 MG, DAILY
  2. ENALAPRIL MALEATE [Suspect]
     Dosage: 5 MG, DAILY
  3. ENBREL [Suspect]
     Indication: RHEUMATOID ARTHRITIS
     Dosage: 50 MG, WEEKLY
     Route: 058
     Dates: start: 20060101
  4. ENBREL [Suspect]
     Dosage: 50 UNK, QWK
     Route: 058
     Dates: start: 20110330

REACTIONS (7)
  - BLOOD PRESSURE DECREASED [None]
  - ABDOMINAL PAIN [None]
  - TENSION [None]
  - PYREXIA [None]
  - SYNCOPE [None]
  - IRRITABLE BOWEL SYNDROME [None]
  - INFLUENZA [None]
